FAERS Safety Report 4959148-5 (Version None)
Quarter: 2006Q1

REPORT INFORMATION
  Report Type: 
  Country: None (occurrence: None)
  Receive Date: 20060330
  Receipt Date: 20060330
  Transmission Date: 20060701
  Serious: Yes (Hospitalization, Other)
  Sender: FDA-Public Use
  Company Number: None

PATIENT
  Age: 63 Year
  Sex: Male
  Weight: 69.4003 kg

DRUGS (3)
  1. SINGULAIR [Suspect]
     Indication: ASTHMA
     Dosage: 10 MG ONCE DAILY PO
     Route: 048
     Dates: start: 20040801, end: 20060201
  2. AZMACORT [Concomitant]
  3. FLONASE [Concomitant]

REACTIONS (4)
  - ALLERGIC GRANULOMATOUS ANGIITIS [None]
  - DYSPNOEA [None]
  - PERICARDIAL EFFUSION [None]
  - PERICARDITIS [None]
